FAERS Safety Report 20594650 (Version 1)
Quarter: 2022Q1

REPORT INFORMATION
  Report Type: Spontaneous
  Country: US (occurrence: None)
  Receive Date: 20220315
  Receipt Date: 20220315
  Transmission Date: 20220423
  Serious: No
  Sender: FDA-Public Use
  Company Number: US-ROCHE-2893210

PATIENT
  Age: 65 Year
  Sex: Female
  Weight: 65.830 kg

DRUGS (7)
  1. XOLAIR [Suspect]
     Active Substance: OMALIZUMAB
     Indication: Hypersensitivity
     Dosage: TWO SHOTS, ONE SHOT IN EACH ARM ;ONGOING: YES
     Route: 058
     Dates: start: 2018
  2. XOLAIR [Suspect]
     Active Substance: OMALIZUMAB
     Indication: Asthma
     Dosage: 150MG/75MG
     Route: 058
     Dates: start: 20180124
  3. SINGULAIR [Concomitant]
     Active Substance: MONTELUKAST SODIUM
     Dosage: YES
  4. NASAL SPRAY (UNK INGREDIENTS) [Concomitant]
     Dosage: YES
  5. NEBULIZER (UNK INGREDIENTS) [Concomitant]
     Dosage: AS NEEDED ;ONGOING: YES
  6. BELSOMRA [Concomitant]
     Active Substance: SUVOREXANT
  7. MONTELUKAST [Concomitant]
     Active Substance: MONTELUKAST SODIUM

REACTIONS (4)
  - Rash [Recovering/Resolving]
  - Eye swelling [Recovering/Resolving]
  - Unevaluable event [Unknown]
  - Drug ineffective [Unknown]

NARRATIVE: CASE EVENT DATE: 20210101
